FAERS Safety Report 9718039 (Version 1)
Quarter: 2013Q4

REPORT INFORMATION
  Report Type: Not Available
  Country: US (occurrence: US)
  Receive Date: 20131125
  Receipt Date: 20131125
  Transmission Date: 20140711
  Serious: No
  Sender: FDA-Public Use
  Company Number: US-VIVUS-2013V1000457

PATIENT
  Age: 60 Year
  Sex: Female
  Weight: 124.4 kg

DRUGS (9)
  1. QSYMIA 3.75MG/23MG [Suspect]
     Indication: WEIGHT DECREASED
     Route: 048
     Dates: start: 20130606, end: 20130611
  2. HUMALOG INSULIN [Concomitant]
     Indication: TYPE 2 DIABETES MELLITUS
     Dosage: SLIDING SCALE: 8-12 UNITS WITH MEALS
     Route: 058
  3. LANTUS INSULIN [Concomitant]
     Indication: TYPE 2 DIABETES MELLITUS
     Dosage: 20 UNITS IN AM AND PM
     Route: 058
  4. METFORMIN [Concomitant]
     Indication: TYPE 2 DIABETES MELLITUS
     Route: 048
  5. LIPITOR [Concomitant]
     Indication: BLOOD CHOLESTEROL INCREASED
     Route: 048
  6. ASPIRIN [Concomitant]
     Indication: PROPHYLAXIS
     Route: 048
  7. WELLBUTRIN SR [Concomitant]
     Indication: WEIGHT DECREASED
     Route: 048
  8. ZETIA [Concomitant]
     Indication: BLOOD CHOLESTEROL INCREASED
     Route: 048
  9. AMLODIPINE [Concomitant]
     Indication: NEPHROPROTECTIVE THERAPY
     Route: 048
     Dates: start: 201303

REACTIONS (4)
  - Heart rate abnormal [Recovered/Resolved]
  - Local swelling [Recovered/Resolved]
  - Weight increased [Recovered/Resolved]
  - Palpitations [Recovered/Resolved]
